FAERS Safety Report 9483843 (Version 3)
Quarter: 2014Q1

REPORT INFORMATION
  Report Type: Report from Study
  Country: US (occurrence: US)
  Receive Date: 20130828
  Receipt Date: 20140131
  Transmission Date: 20141002
  Serious: Yes (Hospitalization, Other)
  Sender: FDA-Public Use
  Company Number: PHEH2013US015740

PATIENT
  Age: 32 Year
  Sex: Female

DRUGS (16)
  1. AFINITOR [Suspect]
     Indication: ANGIOMYOLIPOMA
     Dosage: 10 MG, QD
     Route: 048
     Dates: start: 20130701
  2. AFINITOR [Suspect]
     Dosage: UNK
     Dates: start: 20130713
  3. FENTANYL [Concomitant]
     Indication: PAIN
     Dosage: 150 UG
     Route: 062
  4. DILAUDID [Concomitant]
     Indication: PAIN
     Dosage: 4 MG
     Route: 048
  5. MIRTAZAPINE [Concomitant]
     Indication: ANXIETY
     Dosage: 15 MG, QD
     Route: 048
  6. SINGULAIR [Concomitant]
     Indication: ASTHMA
     Dosage: 10 MG, QD
     Route: 048
  7. TRILEPTAL [Concomitant]
     Indication: CONVULSION
     Dosage: 150 MG, BID
     Route: 048
  8. SILDENAFIL [Concomitant]
     Indication: PULMONARY HYPERTENSION
     Dosage: 20 MG, TID
     Route: 048
  9. DIOVAN [Concomitant]
     Indication: HYPERTENSION
     Dosage: 160 MG, QD
     Route: 048
  10. LYRICA [Concomitant]
     Indication: NEUROPATHY PERIPHERAL
     Dosage: 75 MG, BID
  11. VITAMIN D 2000 [Concomitant]
     Dosage: 2000 MG, QD
     Route: 048
  12. ADVAIR DISKUS [Concomitant]
  13. SPIRIVA HANDIHALER [Concomitant]
  14. XOPENEX [Concomitant]
     Dosage: 45 UG, AS NEEDED
  15. REMERON [Concomitant]
  16. OXYGEN [Concomitant]

REACTIONS (6)
  - Unresponsive to stimuli [Unknown]
  - Vomiting [Unknown]
  - Sensory loss [Recovered/Resolved]
  - Fall [Recovered/Resolved]
  - Arthralgia [Recovered/Resolved]
  - Headache [Not Recovered/Not Resolved]
